FAERS Safety Report 20921789 (Version 1)
Quarter: 2022Q2

REPORT INFORMATION
  Report Type: Report from Study
  Country: CA (occurrence: CA)
  Receive Date: 20220606
  Receipt Date: 20220606
  Transmission Date: 20220721
  Serious: Yes (Hospitalization, Other)
  Sender: FDA-Public Use
  Company Number: CA-ABBVIE-22K-028-4364779-00

PATIENT
  Sex: Male
  Weight: 85.1 kg

DRUGS (7)
  1. VENCLEXTA [Suspect]
     Active Substance: VENETOCLAX
     Indication: Acute myeloid leukaemia
     Route: 048
     Dates: start: 20220214, end: 2022
  2. VENCLEXTA [Suspect]
     Active Substance: VENETOCLAX
     Route: 048
     Dates: start: 2022, end: 20220419
  3. VORICONAZOLE [Concomitant]
     Active Substance: VORICONAZOLE
     Indication: Antifungal prophylaxis
     Route: 048
     Dates: start: 20220214, end: 20220419
  4. CANAGLIFLOZIN ANHYDROUS [Concomitant]
     Active Substance: CANAGLIFLOZIN ANHYDROUS
     Indication: Product used for unknown indication
  5. HYDROGEN PEROXIDE [Concomitant]
     Active Substance: HYDROGEN PEROXIDE
     Indication: Product used for unknown indication
  6. SUCRALFATE [Concomitant]
     Active Substance: SUCRALFATE
     Indication: Product used for unknown indication
  7. AZACITIDINE [Concomitant]
     Active Substance: AZACITIDINE
     Indication: Product used for unknown indication

REACTIONS (28)
  - Inflammation [Unknown]
  - Mass [Unknown]
  - Myelodysplastic syndrome [Unknown]
  - Drug hypersensitivity [Unknown]
  - Hyperkeratosis [Unknown]
  - Myelofibrosis [Unknown]
  - SARS-CoV-2 test positive [Unknown]
  - Pain [Unknown]
  - Contusion [Unknown]
  - Pain [Recovering/Resolving]
  - Dysgeusia [Unknown]
  - Ear congestion [Not Recovered/Not Resolved]
  - Unevaluable event [Not Recovered/Not Resolved]
  - Pyrexia [Recovered/Resolved]
  - Asthenia [Not Recovered/Not Resolved]
  - Febrile neutropenia [Recovered/Resolved]
  - Febrile neutropenia [Recovered/Resolved]
  - Haemoglobin decreased [Recovered/Resolved]
  - Platelet count decreased [Recovered/Resolved]
  - Pyrexia [Recovered/Resolved]
  - Presyncope [Recovering/Resolving]
  - Adverse drug reaction [Unknown]
  - Haematoma [Unknown]
  - Musculoskeletal pain [Unknown]
  - Nausea [Recovering/Resolving]
  - Swelling [Recovering/Resolving]
  - Asthenia [Not Recovered/Not Resolved]
  - Epistaxis [Unknown]

NARRATIVE: CASE EVENT DATE: 20220101
